FAERS Safety Report 12628221 (Version 2)
Quarter: 2016Q4

REPORT INFORMATION
  Report Type: Spontaneous
  Country: FR (occurrence: FR)
  Receive Date: 20160808
  Receipt Date: 20161202
  Transmission Date: 20170207
  Serious: Yes (Other)
  Sender: FDA-Public Use
  Company Number: FR-ABBVIE-16K-056-1693506-00

PATIENT
  Age: 45 Year
  Sex: Female

DRUGS (4)
  1. REMICADE [Suspect]
     Active Substance: INFLIXIMAB
     Dosage: 5 MG/KG
     Route: 042
     Dates: start: 201512, end: 20160204
  2. HUMIRA [Suspect]
     Active Substance: ADALIMUMAB
     Indication: CROHN^S DISEASE
     Route: 058
     Dates: start: 2011, end: 201203
  3. HUMIRA [Suspect]
     Active Substance: ADALIMUMAB
     Route: 058
     Dates: start: 20140505, end: 201512
  4. REMICADE [Suspect]
     Active Substance: INFLIXIMAB
     Indication: PRODUCT USED FOR UNKNOWN INDICATION
     Dosage: 5 MG/KG
     Route: 042
     Dates: start: 201203, end: 201312

REACTIONS (8)
  - Anaphylactic reaction [Recovered/Resolved]
  - Nasal crusting [Recovering/Resolving]
  - Rash pustular [Unknown]
  - Ear injury [Recovering/Resolving]
  - Dermatitis psoriasiform [Recovering/Resolving]
  - Rhinitis [Recovering/Resolving]
  - Vulvitis [Recovering/Resolving]
  - Hidradenitis [Recovering/Resolving]

NARRATIVE: CASE EVENT DATE: 201312
